FAERS Safety Report 6320011-9 (Version None)
Quarter: 2009Q3

REPORT INFORMATION
  Report Type: 
  Country: None (occurrence: None)
  Receive Date: 20090822
  Receipt Date: 20081023
  Transmission Date: 20100115
  Serious: No
  Sender: FDA-Public Use
  Company Number: US-ABBOTT-08P-163-0483463-00

PATIENT
  Sex: Male
  Weight: 70.37 kg

DRUGS (13)
  1. NIASPAN [Suspect]
     Indication: BLOOD CHOLESTEROL INCREASED
     Route: 048
     Dates: start: 20080911
  2. NIASPAN [Suspect]
     Route: 048
     Dates: start: 20080828, end: 20080911
  3. OMEPRAZOLE [Concomitant]
     Indication: GASTRIC DISORDER
     Route: 048
  4. AMITRIPTYLINE [Concomitant]
     Indication: NEUROPATHY PERIPHERAL
     Route: 048
     Dates: start: 20050101
  5. CLOPIDOGREL [Concomitant]
     Indication: CARDIAC DISORDER
     Route: 048
     Dates: start: 19990101
  6. METOPROLOL [Concomitant]
     Indication: BLOOD PRESSURE
     Dosage: 50MG ONCE DAILY/ 25MG ONCE DAILY
     Route: 048
  7. LOSARTAN POTASSIUM [Concomitant]
     Indication: BLOOD PRESSURE
     Route: 048
     Dates: start: 20060101
  8. MIRTAZAPINE [Concomitant]
     Indication: DEPRESSION
     Route: 048
     Dates: start: 20060101
  9. AMLOPID [Concomitant]
     Indication: BLOOD PRESSURE
     Route: 048
     Dates: start: 20060101
  10. INEGY [Concomitant]
     Indication: BLOOD CHOLESTEROL
     Dosage: 10/40MG DAILY
     Route: 048
     Dates: start: 20080101
  11. ALDACTAZIDE-A [Concomitant]
     Indication: DIURETIC THERAPY
     Dosage: 12.5/12.5 DAILY
     Route: 048
  12. ASPIRIN [Concomitant]
     Indication: CARDIAC DISORDER
     Route: 048
  13. FOLIC ACID [Concomitant]
     Indication: DRUG USE FOR UNKNOWN INDICATION
     Route: 048

REACTIONS (1)
  - ARTHRALGIA [None]
